FAERS Safety Report 9369036 (Version 2)
Quarter: 2013Q3

REPORT INFORMATION
  Report Type: Spontaneous
  Country: US (occurrence: US)
  Receive Date: 20130626
  Receipt Date: 20130725
  Transmission Date: 20140515
  Serious: Yes (Other)
  Sender: FDA-Public Use
  Company Number: PHEH2013US013505

PATIENT
  Sex: Male

DRUGS (2)
  1. DIOVAN [Suspect]
     Dosage: 80 MG, QD
     Route: 048
  2. AMLODIPINE [Suspect]

REACTIONS (3)
  - Prostate cancer [Unknown]
  - Hypertension [Unknown]
  - Feeling of body temperature change [Unknown]
